FAERS Safety Report 8329505-8 (Version None)
Quarter: 2012Q2

REPORT INFORMATION
  Report Type: 
  Country: None (occurrence: None)
  Receive Date: 20120502
  Receipt Date: 20120430
  Transmission Date: 20120825
  Serious: Yes (Hospitalization)
  Sender: FDA-Public Use
  Company Number: KR-ROCHE-1039711

PATIENT
  Sex: Female
  Weight: 48.7 kg

DRUGS (18)
  1. XELODA [Suspect]
     Indication: GASTRIC CANCER
     Route: 048
     Dates: start: 20120114, end: 20120210
  2. DOCETAXEL [Suspect]
     Indication: GASTRIC CANCER
     Dosage: 90 MG ON CYCLE 1 AND 2
     Route: 042
     Dates: start: 20120114
  3. DOCETAXEL [Suspect]
     Dosage: 4 TH CYCLE
     Dates: start: 20120413
  4. GLIMEPIRIDE [Concomitant]
     Dates: start: 20020510
  5. METFORMIN HCL [Concomitant]
     Dates: start: 20020510
  6. DOCETAXEL [Suspect]
     Dosage: DOSE REDUCTION OF 25%
     Route: 042
     Dates: start: 20120323
  7. SUCRALFATE [Concomitant]
     Dates: start: 20120125
  8. CISPLATIN [Suspect]
     Indication: GASTRIC CANCER
     Route: 042
     Dates: start: 20120114
  9. PIOGLITAZONE [Concomitant]
     Dates: start: 20020510
  10. ARTEMISIA ASIATICA [Concomitant]
     Dates: start: 20120125
  11. XELODA [Suspect]
     Route: 048
     Dates: start: 20120203, end: 20120217
  12. XELODA [Suspect]
     Dosage: 25% DOSE REDUCTION
     Route: 048
     Dates: start: 20120323, end: 20120331
  13. THIOCTIC ACID [Concomitant]
     Dates: start: 20020510
  14. ATORVASTATIN CALCIUM [Concomitant]
     Dates: start: 20020510
  15. AVASTIN [Suspect]
     Indication: GASTRIC CANCER
     Route: 042
     Dates: start: 20120114
  16. XELODA [Suspect]
     Dosage: DOSE REDUCTION OF 50%.
     Route: 048
     Dates: start: 20120413
  17. MEGESTROL ACETATE [Concomitant]
     Dates: start: 20120114
  18. METOCLOPRAMIDE/PANCREATIN [Concomitant]
     Dates: start: 20120106

REACTIONS (2)
  - FEBRILE NEUTROPENIA [None]
  - GASTROINTESTINAL PERFORATION [None]
